FAERS Safety Report 8854541 (Version 2)
Quarter: 2012Q4

REPORT INFORMATION
  Report Type: 
  Country: US (occurrence: US)
  Receive Date: 20121023
  Receipt Date: 20121219
  Transmission Date: 20130627
  Serious: No
  Sender: FDA-Public Use
  Company Number: US-VERTEX PHARMACEUTICAL INC.-2012-022984

PATIENT
  Sex: Male
  Weight: 84 kg

DRUGS (3)
  1. VX-950 (TELAPREVIR) [Suspect]
     Indication: HEPATITIS C
     Dosage: 750 mg, tid
     Route: 048
     Dates: start: 20120904
  2. RIBAPAK [Concomitant]
     Indication: HEPATITIS C
     Dosage: 600 mg, bid
     Route: 048
     Dates: start: 20120904
  3. PEGASYS [Concomitant]
     Indication: HEPATITIS C
     Dosage: 180 ?g, qw
     Route: 058
     Dates: start: 20120904

REACTIONS (15)
  - White blood cell count decreased [Unknown]
  - Mouth ulceration [Recovered/Resolved]
  - Swelling [Recovered/Resolved]
  - Weight increased [Recovered/Resolved]
  - Influenza [Recovered/Resolved]
  - Arthralgia [Unknown]
  - Dry skin [Unknown]
  - Fatigue [Unknown]
  - Proctalgia [Unknown]
  - Rash generalised [Recovered/Resolved]
  - Blister [Recovered/Resolved]
  - Dysgeusia [Recovered/Resolved]
  - Skin exfoliation [Recovered/Resolved]
  - Anorectal discomfort [Not Recovered/Not Resolved]
  - Anal pruritus [Not Recovered/Not Resolved]
